FAERS Safety Report 25299614 (Version 2)
Quarter: 2025Q2

REPORT INFORMATION
  Report Type: Spontaneous
  Country: US (occurrence: US)
  Receive Date: 20250512
  Receipt Date: 20250522
  Transmission Date: 20250716
  Serious: Yes (Life-Threatening, Hospitalization, Other)
  Sender: AMGEN
  Company Number: US-AMGEN-USASP2025090233

PATIENT
  Age: 68 Year
  Sex: Female
  Weight: 45.805 kg

DRUGS (7)
  1. PROLIA [Suspect]
     Active Substance: DENOSUMAB
     Indication: Osteoporosis
     Dosage: 60 MILLIGRAM, Q6MO
     Route: 058
     Dates: start: 20240419
  2. SODIUM [Concomitant]
     Active Substance: SODIUM
  3. CALCIUM CARBONATE [Concomitant]
     Active Substance: CALCIUM CARBONATE
     Dosage: 1000 MILLIGRAM, TID
  4. CALCITRIOL [Concomitant]
     Active Substance: CALCITRIOL
     Dosage: 0.25 MICROGRAM, BID
  5. AMIODARONE [Concomitant]
     Active Substance: AMIODARONE
  6. CHOLECALCIFEROL [Concomitant]
     Active Substance: CHOLECALCIFEROL
  7. CALCIUM [Concomitant]
     Active Substance: CALCIUM

REACTIONS (14)
  - Cardiac arrest [Unknown]
  - Myocardial infarction [Recovered/Resolved]
  - Gastrointestinal haemorrhage [Unknown]
  - Hypocalcaemia [Recovered/Resolved]
  - Nephropathy [Unknown]
  - Hypoparathyroidism [Unknown]
  - Metabolic function test abnormal [Unknown]
  - Blood thyroid stimulating hormone increased [Unknown]
  - Carbon dioxide decreased [Unknown]
  - Blood creatinine increased [Unknown]
  - Blood cholesterol decreased [Unknown]
  - Blood albumin decreased [Unknown]
  - Blood parathyroid hormone increased [Unknown]
  - Blood phosphorus decreased [Unknown]

NARRATIVE: CASE EVENT DATE: 20250101
